FAERS Safety Report 7148457-X (Version None)
Quarter: 2010Q4

REPORT INFORMATION
  Report Type: 
  Country: None (occurrence: None)
  Receive Date: 20101209
  Receipt Date: 20101202
  Transmission Date: 20110411
  Serious: Yes (Other)
  Sender: FDA-Public Use
  Company Number: US-JNJFOC-20101202147

PATIENT
  Sex: Female
  Weight: 81.65 kg

DRUGS (2)
  1. NUCYNTA [Suspect]
     Indication: SURGERY
     Dosage: EVERY 4-6 HOURS AS NEEDED
     Route: 048
  2. ANAPROX [Concomitant]
     Indication: ARTHRITIS
     Dosage: AS NEEDED
     Route: 048

REACTIONS (2)
  - APNOEA [None]
  - SUFFOCATION FEELING [None]
